FAERS Safety Report 26207463 (Version 1)
Quarter: 2025Q4

REPORT INFORMATION
  Report Type: Report from Study
  Country: EU (occurrence: EU)
  Receive Date: 20251229
  Receipt Date: 20251229
  Transmission Date: 20260117
  Serious: Yes (Hospitalization)
  Sender: ABBVIE
  Company Number: EU-ABBVIE-6597385

PATIENT
  Age: 71 Year
  Sex: Female

DRUGS (2)
  1. FOSCARBIDOPA\FOSLEVODOPA [Suspect]
     Active Substance: FOSCARBIDOPA\FOSLEVODOPA
     Indication: Parkinson^s disease
     Dosage: CR 0.21ML/H; CR HIGH 0.24ML/H; CR LOW 0.15ML/H; ED 0.10ML
     Route: 058
     Dates: start: 20251204, end: 202512
  2. FOSCARBIDOPA\FOSLEVODOPA [Suspect]
     Active Substance: FOSCARBIDOPA\FOSLEVODOPA
     Dosage: CR 0.22ML/H; CR HIGH 0.25ML/H; CR LOW 0.17ML/H; ED 0.10ML
     Route: 058
     Dates: start: 202512

REACTIONS (5)
  - Pharyngeal operation [Recovered/Resolved]
  - Tremor [Not Recovered/Not Resolved]
  - Asthenia [Unknown]
  - On and off phenomenon [Unknown]
  - Hypokinesia [Recovered/Resolved]

NARRATIVE: CASE EVENT DATE: 20251201
